FAERS Safety Report 9522567 (Version 2)
Quarter: 2014Q4

REPORT INFORMATION
  Report Type: Spontaneous
  Country: US (occurrence: US)
  Receive Date: 20130913
  Receipt Date: 20141121
  Transmission Date: 20150529
  Serious: Yes (Hospitalization)
  Sender: FDA-Public Use
  Company Number: US-BAYER-2013-110616

PATIENT
  Age: 35 Year
  Sex: Female
  Weight: 102.49 kg

DRUGS (1)
  1. MIRENA [Suspect]
     Active Substance: LEVONORGESTREL
     Indication: MENORRHAGIA
     Dosage: 20 MCG/24HR, CONT
     Route: 015
     Dates: start: 20100427, end: 20120405

REACTIONS (8)
  - Injury [None]
  - Scar [None]
  - Procedural pain [None]
  - Medical device discomfort [None]
  - Pain [None]
  - Device dislocation [None]
  - Device failure [None]
  - Device issue [None]

NARRATIVE: CASE EVENT DATE: 20120229
